FAERS Safety Report 6929013-2 (Version None)
Quarter: 2010Q3

REPORT INFORMATION
  Report Type: 
  Country: None (occurrence: None)
  Receive Date: 20100817
  Receipt Date: 20100713
  Transmission Date: 20110219
  Serious: Yes (Other)
  Sender: FDA-Public Use
  Company Number: PHEH2008US06597

PATIENT
  Sex: Female

DRUGS (2)
  1. ZOMETA [Suspect]
     Indication: OSTEOPOROSIS PROPHYLAXIS
     Dosage: UNK
     Dates: start: 20060101, end: 20060801
  2. FOSAMAX [Suspect]
     Dosage: UNK
     Dates: start: 20031201, end: 20050901

REACTIONS (5)
  - ANXIETY [None]
  - DECREASED INTEREST [None]
  - INJURY [None]
  - OSTEONECROSIS OF JAW [None]
  - PAIN [None]
